FAERS Safety Report 4373362-1 (Version None)
Quarter: 2004Q2

REPORT INFORMATION
  Report Type: 
  Country: None (occurrence: None)
  Receive Date: 20040603
  Receipt Date: 20040526
  Transmission Date: 20050107
  Serious: Yes (Hospitalization)
  Sender: FDA-Public Use
  Company Number: US-JNJFOC-20040306203

PATIENT
  Age: 78 Year
  Sex: Female

DRUGS (6)
  1. LEVAQUIN [Suspect]
     Indication: CELLULITIS
     Dosage: 500 MG, ORAL
     Route: 048
     Dates: start: 20040315, end: 20040318
  2. CHLORTHALIDONE [Concomitant]
  3. INSULIN [Concomitant]
  4. PROTONIX [Concomitant]
  5. SYNTHROID [Concomitant]
  6. ZESRIL (LISINOPRIL) [Concomitant]

REACTIONS (4)
  - DISSEMINATED INTRAVASCULAR COAGULATION [None]
  - PURPURA [None]
  - RASH GENERALISED [None]
  - URTICARIA [None]
